FAERS Safety Report 25157016 (Version 2)
Quarter: 2025Q2

REPORT INFORMATION
  Report Type: Report from Study
  Country: DE (occurrence: DE)
  Receive Date: 20250403
  Receipt Date: 20250416
  Transmission Date: 20250717
  Serious: Yes (Death, Life-Threatening, Hospitalization, Congenital Anomaly, Other)
  Sender: MERCK SHARP AND DOHME
  Company Number: DE-009507513-2271418

PATIENT
  Age: 50 Year
  Sex: Male
  Weight: 90 kg

DRUGS (12)
  1. PEMBROLIZUMAB [Suspect]
     Active Substance: PEMBROLIZUMAB
     Indication: Non-small cell lung cancer
     Dates: start: 20250326, end: 20250326
  2. GRANISETRON [Concomitant]
     Active Substance: GRANISETRON
     Route: 042
     Dates: start: 20250326, end: 20250326
  3. DEXAMETHASONE [Concomitant]
     Active Substance: DEXAMETHASONE
     Route: 042
     Dates: start: 20250326, end: 2025
  4. FOSAPREPITANT [Concomitant]
     Active Substance: FOSAPREPITANT
     Route: 042
     Dates: start: 20250326, end: 20250326
  5. Hydromorphon akut [Concomitant]
     Route: 048
  6. PEMETREXED [Suspect]
     Active Substance: PEMETREXED
     Indication: Non-small cell lung cancer
     Dates: start: 20250326, end: 20250326
  7. PANTOPRAZOLE SODIUM [Concomitant]
     Active Substance: PANTOPRAZOLE SODIUM
     Route: 048
  8. Metamizol natrium  500mg Tropfen [Concomitant]
     Dosage: STRENGTH: 500MG
     Route: 048
  9. Candesartancilexetil  Hennig [Concomitant]
     Route: 048
  10. CARBOPLATIN [Suspect]
     Active Substance: CARBOPLATIN
     Indication: Non-small cell lung cancer
     Dates: start: 20250326, end: 20250326
  11. Tinzaparin natrium [Concomitant]
     Route: 058
  12. HYDROMORPHONE [Concomitant]
     Active Substance: HYDROMORPHONE
     Route: 048

REACTIONS (2)
  - Fatigue [Not Recovered/Not Resolved]
  - Death [Fatal]

NARRATIVE: CASE EVENT DATE: 20250331
